FAERS Safety Report 18954831 (Version 1)
Quarter: 2021Q1

REPORT INFORMATION
  Report Type: Spontaneous
  Country: FR (occurrence: FR)
  Receive Date: 20210301
  Receipt Date: 20210301
  Transmission Date: 20210420
  Serious: Yes (Hospitalization, Other)
  Sender: FDA-Public Use
  Company Number: FR-PFIZER INC-2021166662

PATIENT
  Age: 6 Year

DRUGS (1)
  1. BESPONSA [Suspect]
     Active Substance: INOTUZUMAB OZOGAMICIN
     Indication: ACUTE LYMPHOCYTIC LEUKAEMIA REFRACTORY
     Dosage: 0.8 MG/M2
     Dates: start: 20210208

REACTIONS (8)
  - Oedema [Unknown]
  - Proteinuria [Unknown]
  - Inappropriate antidiuretic hormone secretion [Unknown]
  - Liver disorder [Unknown]
  - Pleural effusion [Unknown]
  - Ascites [Unknown]
  - Macroglossia [Unknown]
  - Respiratory distress [Unknown]

NARRATIVE: CASE EVENT DATE: 202102
